FAERS Safety Report 14741404 (Version 2)
Quarter: 2018Q2

REPORT INFORMATION
  Report Type: Report from Study
  Country: None (occurrence: US)
  Receive Date: 20180410
  Receipt Date: 20180529
  Transmission Date: 20180711
  Serious: Yes (Hospitalization)
  Sender: FDA-Public Use
  Company Number: US-ABBVIE-18K-163-2311019-00

PATIENT
  Age: 69 Year
  Sex: Male
  Weight: 93.07 kg

DRUGS (8)
  1. SPIRIVA [Suspect]
     Active Substance: TIOTROPIUM BROMIDE MONOHYDRATE
     Indication: DYSPNOEA
     Route: 065
     Dates: start: 2018, end: 2018
  2. TYVASO [Suspect]
     Active Substance: TREPROSTINIL
     Indication: PULMONARY HYPERTENSION
     Route: 065
     Dates: start: 2018, end: 20180330
  3. SPIRIVA [Suspect]
     Active Substance: TIOTROPIUM BROMIDE MONOHYDRATE
     Route: 065
     Dates: start: 20180402
  4. HUMIRA [Suspect]
     Active Substance: ADALIMUMAB
     Indication: PSORIASIS
     Route: 058
     Dates: start: 2008, end: 2008
  5. TYVASO [Suspect]
     Active Substance: TREPROSTINIL
     Route: 065
     Dates: start: 20180331
  6. HUMIRA [Suspect]
     Active Substance: ADALIMUMAB
     Indication: PSORIATIC ARTHROPATHY
     Route: 058
     Dates: start: 2008
  7. SILDENAFIL CITRATE. [Suspect]
     Active Substance: SILDENAFIL CITRATE
     Indication: PULMONARY HYPERTENSION
     Route: 065
     Dates: start: 2018, end: 2018
  8. REVATIO [Suspect]
     Active Substance: SILDENAFIL CITRATE
     Indication: PRODUCT USED FOR UNKNOWN INDICATION
     Route: 065
     Dates: start: 2018, end: 2018

REACTIONS (10)
  - Head discomfort [Unknown]
  - Hypersomnia [Unknown]
  - Dyspnoea [Recovering/Resolving]
  - Dizziness [Unknown]
  - Urinary incontinence [Unknown]
  - Oedema peripheral [Unknown]
  - Pulmonary hypertension [Not Recovered/Not Resolved]
  - Adverse drug reaction [Unknown]
  - Psoriasis [Unknown]
  - Headache [Unknown]

NARRATIVE: CASE EVENT DATE: 201712
